FAERS Safety Report 5466565-6 (Version None)
Quarter: 2007Q3

REPORT INFORMATION
  Report Type: 
  Country: None (occurrence: None)
  Receive Date: 20070921
  Receipt Date: 20070921
  Transmission Date: 20080115
  Serious: Yes (Hospitalization)
  Sender: FDA-Public Use
  Company Number: None

PATIENT
  Age: 44 Year
  Sex: Female
  Weight: 38.1022 kg

DRUGS (3)
  1. QUETIAPINE FUMARATE [Suspect]
     Indication: ANOREXIA NERVOSA
     Dosage: 300MG PO QH 100MG PO QAM
     Route: 048
     Dates: start: 20070810, end: 20070920
  2. DILANTIN [Concomitant]
  3. POTASSIUM CHLORIDE [Concomitant]

REACTIONS (2)
  - FALL [None]
  - PELVIC FRACTURE [None]
